FAERS Safety Report 10302532 (Version 1)
Quarter: 2014Q3

REPORT INFORMATION
  Report Type: Spontaneous
  Country: US (occurrence: None)
  Receive Date: 20140709
  Receipt Date: 20140709
  Transmission Date: 20150326
  Serious: Yes (Other)
  Sender: FDA-Public Use
  Company Number: C14 040 AE

PATIENT
  Age: 3 Month
  Sex: Male

DRUGS (1)
  1. OMEPRAZOLE. [Suspect]
     Active Substance: OMEPRAZOLE
     Indication: GASTROOESOPHAGEAL REFLUX DISEASE
     Route: 048
     Dates: start: 20140623, end: 20140624

REACTIONS (5)
  - Product compounding quality issue [None]
  - Accidental overdose [None]
  - Hunger [None]
  - Product label issue [None]
  - Constipation [None]

NARRATIVE: CASE EVENT DATE: 20140624
